FAERS Safety Report 9203602 (Version 2)
Quarter: 2013Q3

REPORT INFORMATION
  Report Type: Spontaneous
  Country: CN (occurrence: CN)
  Receive Date: 20130402
  Receipt Date: 20130705
  Transmission Date: 20140515
  Serious: Yes (Other)
  Sender: FDA-Public Use
  Company Number: PHHY2013CN031300

PATIENT
  Sex: Female

DRUGS (1)
  1. TELBIVUDINE [Suspect]
     Indication: CHRONIC HEPATITIS B
     Dosage: UNK

REACTIONS (2)
  - Ectopic pregnancy [Unknown]
  - Maternal exposure during pregnancy [Unknown]
